FAERS Safety Report 6895797-5 (Version None)
Quarter: 2010Q3

REPORT INFORMATION
  Report Type: 
  Country: None (occurrence: None)
  Receive Date: 20100802
  Receipt Date: 20100721
  Transmission Date: 20110219
  Serious: Yes (Hospitalization)
  Sender: FDA-Public Use
  Company Number: US-GENZYME-FABR-1001335

PATIENT

DRUGS (8)
  1. FABRAZYME [Suspect]
     Indication: FABRY'S DISEASE
     Dosage: 70 MG, Q4W
     Route: 042
     Dates: start: 20090701
  2. FABRAZYME [Suspect]
     Dosage: 70 MG, Q4W
     Route: 042
     Dates: start: 20100503
  3. FABRAZYME [Suspect]
     Dosage: 35 MG, UNK
     Route: 042
     Dates: start: 20090810, end: 20090823
  4. FABRAZYME [Suspect]
     Dosage: 35 MG, UNK
     Route: 042
     Dates: start: 20090824, end: 20090909
  5. FABRAZYME [Suspect]
     Dosage: 35 MG, UNK
     Route: 042
     Dates: start: 20090910
  6. FABRAZYME [Suspect]
     Dosage: 35 MG, UNK
     Route: 042
     Dates: start: 20100114
  7. FABRAZYME [Suspect]
     Dosage: 70 MG, UNK
     Route: 042
     Dates: start: 20100205
  8. COUMADIN [Suspect]
     Indication: PRODUCT USED FOR UNKNOWN INDICATION

REACTIONS (2)
  - CARDIAC DISORDER [None]
  - HAEMORRHAGIC DISORDER [None]
